FAERS Safety Report 10192423 (Version 3)
Quarter: 2014Q3

REPORT INFORMATION
  Report Type: Report from Study
  Country: RU (occurrence: RU)
  Receive Date: 20140523
  Receipt Date: 20140723
  Transmission Date: 20150326
  Serious: Yes (Hospitalization, Disabling, Other)
  Sender: FDA-Public Use
  Company Number: RU-BRISTOL-MYERS SQUIBB COMPANY-19924380

PATIENT
  Age: 63 Year
  Sex: Female

DRUGS (3)
  1. AMOXICLAV [Concomitant]
     Active Substance: AMOXICILLIN\CLAVULANIC ACID
  2. DASATINIB [Suspect]
     Active Substance: DASATINIB
     Indication: CHRONIC MYELOID LEUKAEMIA
     Route: 048
     Dates: start: 20120420, end: 20140324
  3. HYDROXYUREA. [Suspect]
     Active Substance: HYDROXYUREA
     Indication: CHRONIC MYELOID LEUKAEMIA
     Dosage: (5-4-2) GRAINS
     Dates: start: 20131205

REACTIONS (11)
  - Visual impairment [Unknown]
  - Asthenia [Unknown]
  - Arterial thrombosis [Unknown]
  - Lymphadenopathy [Unknown]
  - Pleural effusion [Unknown]
  - Malignant neoplasm progression [Unknown]
  - Anaemia [Unknown]
  - Bronchitis [Unknown]
  - Cough [Unknown]
  - Hydrothorax [Unknown]
  - Pleurisy [Not Recovered/Not Resolved]

NARRATIVE: CASE EVENT DATE: 201307
